FAERS Safety Report 4281010-4 (Version None)
Quarter: 2004Q1

REPORT INFORMATION
  Report Type: 
  Country: None (occurrence: None)
  Receive Date: 20040128
  Receipt Date: 20040128
  Transmission Date: 20041129
  Serious: No
  Sender: FDA-Public Use
  Company Number: None

PATIENT
  Age: 32 Year
  Sex: Male

DRUGS (4)
  1. AMPICILLIN AND SULBACTAM [Suspect]
     Indication: ARTHRITIS INFECTIVE
     Dosage: 3 GM IV Q 6
     Route: 042
     Dates: start: 20040116, end: 20040121
  2. STERILE WATER FOR INJECTION [Suspect]
  3. BENADRYL [Concomitant]
  4. VICODIN [Concomitant]

REACTIONS (2)
  - INJECTION SITE RASH [None]
  - RASH [None]
